FAERS Safety Report 4365313-0 (Version None)
Quarter: 2004Q2

REPORT INFORMATION
  Report Type: 
  Country: None (occurrence: None)
  Receive Date: 20040525
  Receipt Date: 20040212
  Transmission Date: 20050107
  Serious: No
  Sender: FDA-Public Use
  Company Number: PHEH2004US01889

PATIENT
  Age: 31 Year
  Sex: Female

DRUGS (3)
  1. ZELNORM [Suspect]
     Indication: IRRITABLE BOWEL SYNDROME
     Dosage: 6 MG, ONCE/SINGLE
     Dates: start: 20040211, end: 20040211
  2. LO/OVRAL (LEVONORGESTREL) [Concomitant]
  3. EFFEXOR [Concomitant]

REACTIONS (4)
  - DIARRHOEA [None]
  - FLUSHING [None]
  - HEART RATE ABNORMAL [None]
  - NERVOUSNESS [None]
